FAERS Safety Report 6552416-5 (Version None)
Quarter: 2010Q1

REPORT INFORMATION
  Report Type: 
  Country: None (occurrence: None)
  Receive Date: 20100126
  Receipt Date: 20100119
  Transmission Date: 20100710
  Serious: Yes (Hospitalization)
  Sender: FDA-Public Use
  Company Number: BR-ABBOTT-10P-020-0620256-00

PATIENT
  Age: 2 Year
  Sex: Male

DRUGS (1)
  1. VALPAKINE [Suspect]
     Indication: ACCIDENTAL DRUG INTAKE BY CHILD
     Route: 048
     Dates: start: 20100112, end: 20100112

REACTIONS (3)
  - ACCIDENTAL OVERDOSE [None]
  - AGITATION [None]
  - IRRITABILITY [None]
